FAERS Safety Report 21760062 (Version 2)
Quarter: 2022Q4

REPORT INFORMATION
  Report Type: Spontaneous
  Country: EG (occurrence: EG)
  Receive Date: 20221221
  Receipt Date: 20221222
  Transmission Date: 20230113
  Serious: Yes (Death, Other)
  Sender: FDA-Public Use
  Company Number: EG-SA-SAC20221205001058

PATIENT
  Age: 4 Month
  Sex: Male
  Weight: 4.5 kg

DRUGS (4)
  1. MYOZYME [Suspect]
     Active Substance: ALGLUCOSIDASE ALFA
     Indication: Glycogen storage disease type II
     Dosage: 20 MG/KG, 1X
     Dates: start: 20221108
  2. RITUXIMAB [Concomitant]
     Active Substance: RITUXIMAB
     Dosage: 12.5MG/KG
     Route: 042
     Dates: start: 20221107
  3. METHOTREXATE [Concomitant]
     Active Substance: METHOTREXATE
     Dosage: 0.4MG/KG
     Route: 058
     Dates: start: 20221108, end: 20221110
  4. LEVETIRACETAM [Concomitant]
     Active Substance: LEVETIRACETAM
     Indication: Epilepsy
     Dosage: UNK

REACTIONS (1)
  - Cardiopulmonary failure [Fatal]
